FAERS Safety Report 6306507-4 (Version None)
Quarter: 2009Q3

REPORT INFORMATION
  Report Type: 
  Country: None (occurrence: None)
  Receive Date: 20090812
  Receipt Date: 20090805
  Transmission Date: 20100115
  Serious: Yes (Other)
  Sender: FDA-Public Use
  Company Number: B0588324A

PATIENT
  Age: 68 Year
  Sex: Male

DRUGS (1)
  1. NICABATE MINI LOZENGES 4MG [Suspect]
     Indication: DRUG WITHDRAWAL MAINTENANCE THERAPY
     Route: 002
     Dates: start: 20090601, end: 20090601

REACTIONS (4)
  - DEPRESSED MOOD [None]
  - DEPRESSION [None]
  - INSOMNIA [None]
  - SUICIDAL IDEATION [None]
